FAERS Safety Report 9935390 (Version 2)
Quarter: 2014Q2

REPORT INFORMATION
  Report Type: Spontaneous
  Country: US (occurrence: US)
  Receive Date: 20140228
  Receipt Date: 20140408
  Transmission Date: 20141212
  Serious: No
  Sender: FDA-Public Use
  Company Number: US-PFIZER INC-2014054584

PATIENT
  Sex: Male

DRUGS (1)
  1. VIAGRA [Suspect]
     Dosage: 100 MG, UNK
     Route: 048

REACTIONS (3)
  - Suspected counterfeit product [Unknown]
  - Product taste abnormal [Unknown]
  - Drug ineffective [Unknown]
